FAERS Safety Report 13100343 (Version 1)
Quarter: 2017Q1

REPORT INFORMATION
  Report Type: Spontaneous
  Country: US (occurrence: US)
  Receive Date: 20170109
  Receipt Date: 20170109
  Transmission Date: 20170428
  Serious: Yes (Other)
  Sender: FDA-Public Use
  Company Number: None

PATIENT
  Age: 75 Year
  Sex: Female
  Weight: 62.1 kg

DRUGS (3)
  1. MULTI VITAMINES [Concomitant]
  2. WP THYROID [Suspect]
     Active Substance: THYROID, PORCINE
     Indication: THYROID DISORDER
     Dosage: ?          QUANTITY:1 TABLET(S);?
     Route: 048
     Dates: start: 20160810, end: 20170103
  3. ESTROGENS [Concomitant]
     Active Substance: ESTROGENS

REACTIONS (2)
  - Product odour abnormal [None]
  - Drug ineffective [None]

NARRATIVE: CASE EVENT DATE: 20160816
